FAERS Safety Report 10544946 (Version 1)
Quarter: 2014Q4

REPORT INFORMATION
  Report Type: Spontaneous
  Country: US (occurrence: US)
  Receive Date: 20141027
  Receipt Date: 20141027
  Transmission Date: 20150529
  Serious: No
  Sender: FDA-Public Use
  Company Number: US-BAYER-2014-158472

PATIENT
  Sex: Female

DRUGS (1)
  1. ALEVE [Suspect]
     Active Substance: NAPROXEN SODIUM
     Indication: ARTHRITIS
     Dosage: 1 DF, PRN
     Route: 048
     Dates: start: 20141023, end: 20141023

REACTIONS (3)
  - Drug ineffective [None]
  - Dry mouth [Not Recovered/Not Resolved]
  - Inappropriate schedule of drug administration [None]

NARRATIVE: CASE EVENT DATE: 20141023
